FAERS Safety Report 4622820-0 (Version None)
Quarter: 2005Q1

REPORT INFORMATION
  Report Type: 
  Country: None (occurrence: None)
  Receive Date: 20050329
  Receipt Date: 20050329
  Transmission Date: 20050727
  Serious: No
  Sender: FDA-Public Use
  Company Number: None

PATIENT
  Age: 53 Year
  Sex: Female
  Weight: 127.9144 kg

DRUGS (1)
  1. BUMEX [Suspect]
     Indication: OEDEMA
     Dosage: ONE PO Q D
     Route: 048

REACTIONS (4)
  - ABDOMINAL PAIN [None]
  - PHARMACEUTICAL PRODUCT COMPLAINT [None]
  - PYREXIA [None]
  - URTICARIA [None]
